FAERS Safety Report 25857431 (Version 1)
Quarter: 2025Q3

REPORT INFORMATION
  Report Type: Spontaneous
  Country: RU (occurrence: RU)
  Receive Date: 20250929
  Receipt Date: 20250929
  Transmission Date: 20251020
  Serious: Yes (Hospitalization, Other)
  Sender: RANBAXY
  Company Number: RU-SUN PHARMACEUTICAL INDUSTRIES LTD-2025R1-528369

PATIENT
  Age: 27 Year
  Sex: Male

DRUGS (6)
  1. BISOPROLOL [Suspect]
     Active Substance: BISOPROLOL
     Indication: Pericarditis
     Dosage: 5 MILLIGRAM, DAILY
     Route: 065
  2. PREDNISOLONE [Suspect]
     Active Substance: PREDNISOLONE
     Indication: Pericarditis
     Dosage: 40 MILLIGRAM, DAILY
     Route: 065
  3. RIVAROXABAN [Suspect]
     Active Substance: RIVAROXABAN
     Indication: Pericarditis
     Dosage: 20 MILLIGRAM, DAILY
     Route: 065
  4. COLCHICINE [Suspect]
     Active Substance: COLCHICINE
     Indication: Pericarditis
     Dosage: 1 MILLIGRAM, DAILY
     Route: 065
  5. TORSEMIDE [Suspect]
     Active Substance: TORSEMIDE
     Indication: Pericarditis
     Dosage: 10 MILLIGRAM, DAILY
     Route: 065
  6. SPIRONOLACTONE [Suspect]
     Active Substance: SPIRONOLACTONE
     Indication: Pericarditis
     Dosage: 25 MILLIGRAM, DAILY
     Route: 065

REACTIONS (5)
  - Condition aggravated [Unknown]
  - Cushing^s syndrome [Unknown]
  - Disease recurrence [Unknown]
  - Hypotension [Unknown]
  - Therapy non-responder [Unknown]
